FAERS Safety Report 18617418 (Version 1)
Quarter: 2020Q4

REPORT INFORMATION
  Report Type: Spontaneous
  Country: US (occurrence: US)
  Receive Date: 20201214
  Receipt Date: 20201214
  Transmission Date: 20210114
  Serious: Yes (Death, Life-Threatening, Hospitalization)
  Sender: FDA-Public Use
  Company Number: None

PATIENT
  Age: 73 Year
  Sex: Male
  Weight: 68 kg

DRUGS (5)
  1. HUMIRA 40 MG SQ Q2 WEEKS [Concomitant]
     Dates: start: 20180101, end: 20201210
  2. ROSUVASTATIN 10 MG [Concomitant]
     Active Substance: ROSUVASTATIN
     Dates: start: 20190301, end: 20201210
  3. OFEV [Suspect]
     Active Substance: NINTEDANIB
     Indication: INTERSTITIAL LUNG DISEASE
     Route: 048
     Dates: start: 20200215, end: 20201210
  4. LUNESTA 2 MG PO DAILY [Concomitant]
     Dates: start: 20180101, end: 20201210
  5. OMEPRAZOLE 40 MG PO DAILY [Concomitant]
     Dates: start: 20200115, end: 20201210

REACTIONS (2)
  - Haemorrhagic stroke [None]
  - Cerebral haemorrhage [None]

NARRATIVE: CASE EVENT DATE: 20201210
